FAERS Safety Report 6190299-6 (Version None)
Quarter: 2009Q2

REPORT INFORMATION
  Report Type: 
  Country: None (occurrence: None)
  Receive Date: 20090514
  Receipt Date: 20090506
  Transmission Date: 20091009
  Serious: Yes (Hospitalization)
  Sender: FDA-Public Use
  Company Number: A0782792A

PATIENT
  Age: 75 Year
  Sex: Male

DRUGS (14)
  1. WELLBUTRIN XL [Suspect]
     Indication: DEPRESSION
     Dosage: 300MG PER DAY
     Route: 048
     Dates: start: 20090101
  2. BUPROPION HYDROCHLORIDE [Suspect]
     Indication: DEPRESSION
     Dosage: 100MG TWICE PER DAY
     Route: 048
     Dates: start: 20070101, end: 20090101
  3. SERTRALINE HCL [Suspect]
     Indication: DRUG USE FOR UNKNOWN INDICATION
     Route: 065
  4. OXYBUTYNIN [Concomitant]
  5. MULTI-VITAMIN [Concomitant]
  6. CALCIUM WITH VITAMIN D [Concomitant]
  7. TERAZOSIN HCL [Concomitant]
  8. SIMVASTATIN [Concomitant]
  9. TRAZODONE HCL [Concomitant]
  10. CLONAZEPAM [Concomitant]
  11. LISINOPRIL [Concomitant]
  12. GALANTAMINE [Concomitant]
  13. TAMSULOSIN HCL [Concomitant]
  14. PRIMIDONE [Concomitant]

REACTIONS (19)
  - ABDOMINAL PAIN UPPER [None]
  - AMNESIA [None]
  - ANOREXIA [None]
  - APATHY [None]
  - ASTHENIA [None]
  - CHILLS [None]
  - DISABILITY [None]
  - DISORIENTATION [None]
  - DIZZINESS [None]
  - DRUG INTERACTION [None]
  - DYSGEUSIA [None]
  - FLUSHING [None]
  - HAEMOGLOBIN DECREASED [None]
  - HYPERVENTILATION [None]
  - MENTAL IMPAIRMENT [None]
  - NAUSEA [None]
  - PALPITATIONS [None]
  - POLLAKIURIA [None]
  - SUICIDAL IDEATION [None]
